FAERS Safety Report 8145090-8 (Version None)
Quarter: 2012Q1

REPORT INFORMATION
  Report Type: 
  Country: None (occurrence: None)
  Receive Date: 20120217
  Receipt Date: 20120213
  Transmission Date: 20120608
  Serious: Yes (Hospitalization)
  Sender: FDA-Public Use
  Company Number: PHEH2012US003872

PATIENT
  Sex: Female

DRUGS (11)
  1. VITAMIN A W/VITAMIN D/VITAMIN E/VITAMIN K/ [Concomitant]
  2. SYMBICORT [Concomitant]
  3. MIRALAX [Concomitant]
  4. ALBUTEROL [Concomitant]
     Dosage: UNK
  5. CAYSTON [Concomitant]
  6. PULMOZYME [Concomitant]
  7. AZITHROMYCIN [Concomitant]
  8. CREON [Concomitant]
  9. HYPERSAL [Concomitant]
     Dosage: UNK
  10. TOBI [Suspect]
     Indication: CYSTIC FIBROSIS
     Dosage: 300 MG,  28 DAYS ON AND 28 DAYS OFF
     Dates: start: 20110901
  11. NASONEX [Concomitant]

REACTIONS (2)
  - PSEUDOMONAS INFECTION [None]
  - STAPHYLOCOCCAL INFECTION [None]
